FAERS Safety Report 21184329 (Version 2)
Quarter: 2022Q3

REPORT INFORMATION
  Report Type: Spontaneous
  Country: CA (occurrence: CA)
  Receive Date: 20220808
  Receipt Date: 20220907
  Transmission Date: 20221027
  Serious: Yes (Death, Congenital Anomaly, Other)
  Sender: FDA-Public Use
  Company Number: CA-TEVA-2022-CA-2060997

PATIENT
  Age: 31 Week
  Sex: Female
  Weight: 1 kg

DRUGS (6)
  1. SPIRONOLACTONE [Suspect]
     Active Substance: SPIRONOLACTONE
     Indication: Product used for unknown indication
     Route: 065
  2. SPIRONOLACTONE [Suspect]
     Active Substance: SPIRONOLACTONE
     Indication: Foetal exposure during pregnancy
     Route: 064
  3. VALSARTAN [Suspect]
     Active Substance: VALSARTAN
     Indication: Congenital cystic kidney disease
     Route: 065
  4. VALSARTAN [Suspect]
     Active Substance: VALSARTAN
     Indication: Foetal exposure during pregnancy
     Route: 064
  5. LASIX [Suspect]
     Active Substance: FUROSEMIDE
     Indication: Product used for unknown indication
     Route: 065
  6. LASIX [Suspect]
     Active Substance: FUROSEMIDE
     Indication: Foetal exposure during pregnancy
     Route: 064

REACTIONS (7)
  - Oligohydramnios [Fatal]
  - Stillbirth [Fatal]
  - Exposure during pregnancy [Fatal]
  - Angiotensin converting enzyme inhibitor foetopathy [Fatal]
  - Foetal exposure during pregnancy [Fatal]
  - Hypocalvaria [Fatal]
  - Renal tubular dysfunction [Fatal]
